FAERS Safety Report 5699338-X (Version None)
Quarter: 2008Q2

REPORT INFORMATION
  Report Type: 
  Country: None (occurrence: None)
  Receive Date: 20080404
  Receipt Date: 20080327
  Transmission Date: 20081010
  Serious: Yes (Other)
  Sender: FDA-Public Use
  Company Number: 2008-02098

PATIENT
  Age: 51 Year
  Sex: Female

DRUGS (5)
  1. BUTALBITAL ACETAMINOPHEN AND CAFFEINE [Suspect]
     Indication: MIGRAINE
     Dosage: 1 TABLET, SINGLE, ORAL : 1 TABLET, TID, ORAL
     Route: 048
     Dates: start: 20080325, end: 20080325
  2. HYDROCODONE BITARTRATE [Concomitant]
  3. DIAZEPAM [Concomitant]
  4. CYMBALTA [Concomitant]
  5. SOMA [Concomitant]

REACTIONS (7)
  - ABDOMINAL PAIN [None]
  - DIARRHOEA [None]
  - GAIT DISTURBANCE [None]
  - INSOMNIA [None]
  - LOSS OF CONSCIOUSNESS [None]
  - MALAISE [None]
  - PHARMACEUTICAL PRODUCT COMPLAINT [None]
